FAERS Safety Report 18177116 (Version 1)
Quarter: 2020Q3

REPORT INFORMATION
  Report Type: Report from Study
  Country: None (occurrence: AU)
  Receive Date: 20200820
  Receipt Date: 20200820
  Transmission Date: 20201103
  Serious: Yes (Hospitalization)
  Sender: FDA-Public Use
  Company Number: AU-ABBVIE-20K-008-3527966-00

PATIENT
  Age: 73 Year
  Sex: Female

DRUGS (2)
  1. DUODOPA [Suspect]
     Active Substance: CARBIDOPA\LEVODOPA
     Indication: PARKINSON^S DISEASE
     Route: 050
     Dates: start: 20190909
  2. DUODOPA [Suspect]
     Active Substance: CARBIDOPA\LEVODOPA
     Dosage: DOSAGE DECREASED
     Route: 050

REACTIONS (5)
  - Fall [Recovered/Resolved]
  - Unintentional medical device removal [Unknown]
  - Pain [Recovering/Resolving]
  - Stoma site pain [Recovering/Resolving]
  - Stoma site discomfort [Recovered/Resolved]

NARRATIVE: CASE EVENT DATE: 20200816
